FAERS Safety Report 17048397 (Version 1)
Quarter: 2019Q4

REPORT INFORMATION
  Report Type: Spontaneous
  Country: US (occurrence: US)
  Receive Date: 20191118
  Receipt Date: 20191118
  Transmission Date: 20200122
  Serious: Yes (Hospitalization)
  Sender: FDA-Public Use
  Company Number: None

PATIENT
  Age: 61 Year
  Sex: Female

DRUGS (3)
  1. LOSARTAN 50MG [Concomitant]
     Active Substance: LOSARTAN
  2. TRAMADOL 50MG [Concomitant]
     Active Substance: TRAMADOL
  3. HUMIRA [Suspect]
     Active Substance: ADALIMUMAB
     Dosage: ?          OTHER FREQUENCY:Q 14 DAYS;?
     Route: 058
     Dates: start: 20180119

REACTIONS (2)
  - Pulmonary oedema [None]
  - Pneumonia [None]

NARRATIVE: CASE EVENT DATE: 20191108
